FAERS Safety Report 12550292 (Version 1)
Quarter: 2016Q3

REPORT INFORMATION
  Report Type: Spontaneous
  Country: IN (occurrence: IN)
  Receive Date: 20160712
  Receipt Date: 20160712
  Transmission Date: 20161109
  Serious: Yes (Hospitalization)
  Sender: FDA-Public Use
  Company Number: IN-IMPAX LABORATORIES, INC-2016-IPXL-00731

PATIENT
  Age: 70 Year
  Sex: Female

DRUGS (2)
  1. PHENYTOIN CHEWABLE [Suspect]
     Active Substance: PHENYTOIN
     Dosage: 150 MG, BID
     Route: 048
  2. PHENYTOIN CHEWABLE [Suspect]
     Active Substance: PHENYTOIN
     Indication: GENERALISED TONIC-CLONIC SEIZURE
     Dosage: 100 MG, BID
     Route: 048

REACTIONS (5)
  - Dyskinesia [Recovered/Resolved]
  - Delirium [Recovered/Resolved]
  - Toxicity to various agents [Recovered/Resolved]
  - Hallucination, auditory [Recovered/Resolved]
  - Ataxia [Recovered/Resolved]
